FAERS Safety Report 7155886-7 (Version None)
Quarter: 2010Q4

REPORT INFORMATION
  Report Type: 
  Country: None (occurrence: None)
  Receive Date: 20101214
  Receipt Date: 20101206
  Transmission Date: 20110411
  Serious: Yes (Other)
  Sender: FDA-Public Use
  Company Number: US-BRISTOL-MYERS SQUIBB COMPANY-15414568

PATIENT
  Sex: Male

DRUGS (1)
  1. COUMADIN [Suspect]
     Indication: MITRAL VALVE REPLACEMENT
     Dosage: STARTED BEFOR 32 YEARS
     Route: 048

REACTIONS (13)
  - ACCIDENT [None]
  - ANXIETY [None]
  - ARTERIAL OCCLUSIVE DISEASE [None]
  - CHEST DISCOMFORT [None]
  - DIARRHOEA [None]
  - FLATULENCE [None]
  - IMPAIRED HEALING [None]
  - JOINT SWELLING [None]
  - LOSS OF CONSCIOUSNESS [None]
  - MITRAL VALVE PROLAPSE [None]
  - MYOCARDIAL INFARCTION [None]
  - PAIN [None]
  - PALPITATIONS [None]
